FAERS Safety Report 12753449 (Version 1)
Quarter: 2016Q3

REPORT INFORMATION
  Report Type: Spontaneous
  Country: US (occurrence: US)
  Receive Date: 20160915
  Receipt Date: 20160915
  Transmission Date: 20161109
  Serious: Yes (Life-Threatening, Hospitalization)
  Sender: FDA-Public Use
  Company Number: PHHY2016US126058

PATIENT
  Age: 34 Day
  Sex: Male
  Weight: .66 kg

DRUGS (1)
  1. ENOXAPARIN [Suspect]
     Active Substance: ENOXAPARIN
     Indication: VENOUS THROMBOSIS
     Dosage: UNK
     Route: 065

REACTIONS (3)
  - Treatment failure [Recovered/Resolved]
  - Superior vena cava syndrome [Recovered/Resolved]
  - Embolism venous [Recovered/Resolved]
